FAERS Safety Report 9173464 (Version 1)
Quarter: 2013Q1

REPORT INFORMATION
  Report Type: Spontaneous
  Country: US (occurrence: US)
  Receive Date: 20130320
  Receipt Date: 20130320
  Transmission Date: 20140127
  Serious: No
  Sender: FDA-Public Use
  Company Number: US-MYLANLABS-2013S1002771

PATIENT
  Age: 53 Year
  Sex: Female
  Weight: 74.84 kg

DRUGS (3)
  1. ATORVASTATIN CALCIUM [Suspect]
     Route: 048
     Dates: start: 20130103, end: 20130110
  2. HYDROCHLOROTHIAZIDE [Concomitant]
  3. LISINOPRIL [Concomitant]

REACTIONS (2)
  - Local swelling [Not Recovered/Not Resolved]
  - Pain in extremity [Not Recovered/Not Resolved]
